FAERS Safety Report 7464135-1 (Version None)
Quarter: 2011Q2

REPORT INFORMATION
  Report Type: 
  Country: None (occurrence: None)
  Receive Date: 20110506
  Receipt Date: 20110425
  Transmission Date: 20111010
  Serious: Yes (Other)
  Sender: FDA-Public Use
  Company Number: IT-GENENTECH-317827

PATIENT

DRUGS (6)
  1. DEXAMETHASONE [Suspect]
     Indication: PRIMARY AMYLOIDOSIS
     Dosage: UNK
     Route: 065
  2. ACYCLOVIR [Concomitant]
     Indication: PRODUCT USED FOR UNKNOWN INDICATION
     Dosage: UNK
  3. RITUXIMAB [Suspect]
     Indication: PRIMARY AMYLOIDOSIS
     Dosage: UNK
     Route: 065
  4. OMEPRAZOLE [Concomitant]
     Indication: PRODUCT USED FOR UNKNOWN INDICATION
     Dosage: UNK
  5. CIPROFLOXACIN [Concomitant]
     Indication: PRODUCT USED FOR UNKNOWN INDICATION
     Dosage: UNK
  6. BORTEZOMIB [Suspect]
     Indication: PRIMARY AMYLOIDOSIS
     Dosage: UNK
     Route: 065

REACTIONS (4)
  - FLUID RETENTION [None]
  - NEUROPATHY PERIPHERAL [None]
  - HYPOTENSION [None]
  - PNEUMONIA [None]
